FAERS Safety Report 7798178-5 (Version None)
Quarter: 2011Q4

REPORT INFORMATION
  Report Type: 
  Country: None (occurrence: None)
  Receive Date: 20111005
  Receipt Date: 20110928
  Transmission Date: 20120403
  Serious: Yes (Death)
  Sender: FDA-Public Use
  Company Number: US-ACTELION-A-US2011-54920

PATIENT

DRUGS (4)
  1. TADALAFIL [Concomitant]
  2. REMODULIN [Concomitant]
  3. OXYGEN [Concomitant]
  4. TRACLEER [Suspect]
     Indication: PULMONARY ARTERIAL HYPERTENSION
     Dosage: 125 MG, BID
     Route: 048
     Dates: start: 20090225, end: 20110926

REACTIONS (2)
  - HYPOXIA [None]
  - CARDIO-RESPIRATORY ARREST [None]
